FAERS Safety Report 8238030-4 (Version None)
Quarter: 2012Q1

REPORT INFORMATION
  Report Type: 
  Country: None (occurrence: None)
  Receive Date: 20120327
  Receipt Date: 20110610
  Transmission Date: 20120608
  Serious: Yes (Hospitalization)
  Sender: FDA-Public Use
  Company Number: US-GLAXOSMITHKLINE-A0934592A

PATIENT
  Age: 70 Year
  Sex: Male

DRUGS (1)
  1. AVANDIA [Suspect]
     Indication: DIABETES MELLITUS
     Route: 048

REACTIONS (7)
  - DYSPNOEA [None]
  - STENT PLACEMENT [None]
  - TRANSIENT ISCHAEMIC ATTACK [None]
  - LUNG DISORDER [None]
  - PERICARDIAL EFFUSION [None]
  - MYOCARDIAL INFARCTION [None]
  - COUGH [None]
